FAERS Safety Report 5683920-X (Version None)
Quarter: 2008Q1

REPORT INFORMATION
  Report Type: 
  Country: None (occurrence: None)
  Receive Date: 20080328
  Receipt Date: 20080319
  Transmission Date: 20080703
  Serious: Yes (Hospitalization, Other)
  Sender: FDA-Public Use
  Company Number: PHEH2004US09658

PATIENT
  Age: 52 Year
  Sex: Female
  Weight: 86.167 kg

DRUGS (25)
  1. ZOMETA [Suspect]
     Indication: BREAST CANCER METASTATIC
     Dosage: 4 MG Q28D
     Route: 042
     Dates: start: 20011016, end: 20041006
  2. AROMASIN [Concomitant]
     Indication: BREAST CANCER RECURRENT
     Dosage: 25 MG, QD
     Route: 048
     Dates: start: 20031103
  3. AREDIA [Suspect]
     Indication: BREAST CANCER RECURRENT
     Dosage: 90 MG, ONCE/SINGLE
     Route: 042
     Dates: start: 20010919, end: 20010919
  4. FEMARA [Concomitant]
     Indication: BREAST CANCER RECURRENT
     Dosage: 2.5 MG, QD
     Route: 048
     Dates: start: 20010918, end: 20031102
  5. FLUOROURACIL [Concomitant]
     Indication: BREAST CANCER
     Dosage: 1100 MG IV
     Route: 042
     Dates: start: 19941128, end: 19950320
  6. ALLOPURINOL [Concomitant]
     Dosage: 300 MG BY MOUTH 3 DAILY
     Route: 048
     Dates: start: 20050601
  7. EFFEXOR [Concomitant]
     Dosage: 1 TAB DAILY
     Route: 048
     Dates: start: 20050601
  8. REGLAN [Concomitant]
     Dosage: 10 MG, 1 TO 2 TABS 30 MINS BEFORE MEALS
     Dates: start: 20050601
  9. PROTONIX [Concomitant]
     Dosage: 40 MG, BID
     Dates: start: 20050601
  10. ZANTAC [Concomitant]
     Dosage: 150 MG, BID
     Route: 048
     Dates: start: 20050601
  11. ZANTAC [Concomitant]
     Dosage: 150 MG, QD
  12. FLAGYL [Concomitant]
     Dosage: 500 MG, BID
     Dates: start: 20050101
  13. FLAGYL [Concomitant]
     Dosage: 500 MG, BID
     Dates: start: 20050601
  14. OXYCONTIN [Concomitant]
     Indication: PAIN IN JAW
     Dosage: 40 MG, TID
     Dates: start: 20050601
  15. OXYCONTIN [Concomitant]
     Dosage: 20 MG, Q8H
     Route: 048
     Dates: start: 20040901
  16. OXYCONTIN [Concomitant]
     Dosage: 20 MG, Q8H
     Route: 048
     Dates: start: 20050601
  17. OXYCONTIN [Concomitant]
     Dosage: 10 MG, BID
  18. ATIVAN [Concomitant]
     Indication: ANXIETY
     Dosage: 0.5 MG, BID
     Dates: start: 20050601
  19. DEXAMETHASONE TAB [Concomitant]
     Indication: NERVE COMPRESSION
     Dosage: 8 MG, UNK
     Route: 048
     Dates: start: 20050614
  20. DEXAMETHASONE TAB [Concomitant]
     Dosage: 4 MG, TID
     Dates: start: 20050601
  21. TRAZODONE HCL [Concomitant]
     Dosage: 50 TO 200 MG DAILY AT BEDTIME
     Dates: start: 20050601
  22. ZYRTEC [Concomitant]
     Dosage: 10 MG, QD AS NEEDED
     Dates: start: 20050601
  23. MIACALCIN [Concomitant]
     Dosage: 3.7 UNK, QD
  24. CLONAZEPAM [Concomitant]
     Dosage: 0.5 MG, 1 OR 2 TABLETS EVERY 12HRS
  25. XANAX [Concomitant]
     Dosage: UNK, PRN

REACTIONS (30)
  - BONE DEBRIDEMENT [None]
  - BONE DISORDER [None]
  - BONE FORMATION INCREASED [None]
  - BONE LESION [None]
  - CELLULITIS [None]
  - CULTURE POSITIVE [None]
  - DEPRESSION [None]
  - DRUG DEPENDENCE [None]
  - EAR PAIN [None]
  - ERYTHEMA [None]
  - FIBROSIS [None]
  - GINGIVAL SWELLING [None]
  - JAW DISORDER [None]
  - JAW OPERATION [None]
  - LYMPHOMA [None]
  - OEDEMA MOUTH [None]
  - ORAL CANDIDIASIS [None]
  - ORTHOPEDIC PROCEDURE [None]
  - OSTEOMYELITIS [None]
  - OSTEONECROSIS [None]
  - PAIN IN JAW [None]
  - PERIOSTITIS [None]
  - PYREXIA [None]
  - RADIATION INJURY [None]
  - SINUSITIS [None]
  - SWELLING [None]
  - SWELLING FACE [None]
  - TENDERNESS [None]
  - TOOTH EXTRACTION [None]
  - WEIGHT DECREASED [None]
